FAERS Safety Report 19819287 (Version 3)
Quarter: 2024Q2

REPORT INFORMATION
  Report Type: Spontaneous
  Country: SA (occurrence: DE)
  Receive Date: 20210913
  Receipt Date: 20240529
  Transmission Date: 20240716
  Serious: Yes (Hospitalization, Other)
  Sender: FDA-Public Use
  Company Number: US-ROCHE-2899073

PATIENT
  Age: 44 Year
  Sex: Male

DRUGS (16)
  1. GABAPENTIN [Suspect]
     Active Substance: GABAPENTIN
     Indication: Epilepsia partialis continua
     Dosage: UNK
     Route: 065
  2. LAMOTRIGINE [Suspect]
     Active Substance: LAMOTRIGINE
     Indication: Epilepsia partialis continua
     Dosage: 50 MILLIGRAM, ONCE A DAY
     Route: 065
  3. LAMOTRIGINE [Suspect]
     Active Substance: LAMOTRIGINE
     Indication: Rasmussen encephalitis
     Dosage: 100 MILLIGRAM, ONCE A DAY
     Route: 065
  4. LEVETIRACETAM [Suspect]
     Active Substance: LEVETIRACETAM
     Indication: Epilepsia partialis continua
     Dosage: 300 MILLIGRAM, ONCE A DAY
     Route: 065
  5. LEVETIRACETAM [Suspect]
     Active Substance: LEVETIRACETAM
     Indication: Rasmussen encephalitis
  6. PREGABALIN [Suspect]
     Active Substance: PREGABALIN
     Indication: Epilepsia partialis continua
     Dosage: 300 MILLIGRAM, ONCE A DAY
     Route: 065
  7. PREGABALIN [Suspect]
     Active Substance: PREGABALIN
     Indication: Rasmussen encephalitis
  8. CLOBAZAM [Suspect]
     Active Substance: CLOBAZAM
     Indication: Epilepsia partialis continua
     Dosage: UNK
     Route: 065
  9. METHSUXIMIDE [Suspect]
     Active Substance: METHSUXIMIDE
     Indication: Epilepsia partialis continua
     Dosage: UNK
     Route: 065
  10. PHENYTOIN [Suspect]
     Active Substance: PHENYTOIN
     Indication: Epilepsia partialis continua
     Dosage: 100 MILLIGRAM, ONCE A DAY
     Route: 065
  11. VALPROATE [Suspect]
     Active Substance: VALPROIC ACID
     Indication: Epilepsia partialis continua
     Dosage: 2400 MILLIGRAM, ONCE A DAY
     Route: 065
  12. VALPROATE [Suspect]
     Active Substance: VALPROIC ACID
     Indication: Rasmussen encephalitis
  13. CLONAZEPAM [Suspect]
     Active Substance: CLONAZEPAM
     Indication: Epilepsia partialis continua
     Dosage: 3 MILLIGRAM, ONCE A DAY
     Route: 065
  14. CLONAZEPAM [Suspect]
     Active Substance: CLONAZEPAM
     Indication: Rasmussen encephalitis
     Dosage: 2 MILLIGRAM, ONCE A DAY
     Route: 065
  15. PERAMPANEL [Concomitant]
     Active Substance: PERAMPANEL
     Indication: Rasmussen encephalitis
     Dosage: 6 MILLIGRAM, ONCE A DAY
     Route: 065
  16. PERAMPANEL [Concomitant]
     Active Substance: PERAMPANEL
     Indication: Epilepsia partialis continua
     Dosage: 4 MILLIGRAM, ONCE A DAY
     Route: 065

REACTIONS (4)
  - Thrombocytopenia [Unknown]
  - Drug level increased [Unknown]
  - No adverse event [Unknown]
  - Treatment failure [Unknown]
